FAERS Safety Report 5489764-6 (Version None)
Quarter: 2007Q4

REPORT INFORMATION
  Report Type: 
  Country: None (occurrence: None)
  Receive Date: 20071018
  Receipt Date: 20070108
  Transmission Date: 20080405
  Serious: Yes (Other)
  Sender: FDA-Public Use
  Company Number: US-ASTRAZENECA-2007UW00399

PATIENT

DRUGS (1)
  1. MERREM [Suspect]
     Route: 042

REACTIONS (1)
  - CARDIAC ARREST [None]
